FAERS Safety Report 18282607 (Version 1)
Quarter: 2020Q3

REPORT INFORMATION
  Report Type: Spontaneous
  Country: US (occurrence: US)
  Receive Date: 20200918
  Receipt Date: 20200918
  Transmission Date: 20201103
  Serious: No
  Sender: FDA-Public Use
  Company Number: US-PFIZER INC-2020353021

PATIENT
  Age: 47 Year
  Sex: Female
  Weight: 72.57 kg

DRUGS (2)
  1. HEPARIN SODIUM. [Suspect]
     Active Substance: HEPARIN SODIUM
     Indication: MYOCARDIAL INFARCTION
     Dosage: UNK, 2?3 TIMES A DAY
     Route: 058
     Dates: start: 202007, end: 20200706
  2. BRILINTA [Suspect]
     Active Substance: TICAGRELOR
     Dosage: UNK
     Dates: start: 202007, end: 20200706

REACTIONS (5)
  - Hepatic enzyme increased [Unknown]
  - Illness [Unknown]
  - Gastritis [Unknown]
  - Feeling abnormal [Unknown]
  - Contusion [Not Recovered/Not Resolved]

NARRATIVE: CASE EVENT DATE: 2020
